FAERS Safety Report 6556171-4 (Version None)
Quarter: 2010Q1

REPORT INFORMATION
  Report Type: 
  Country: None (occurrence: None)
  Receive Date: 20100128
  Receipt Date: 20090526
  Transmission Date: 20100710
  Serious: No
  Sender: FDA-Public Use
  Company Number: US-TEVA-196123USA

PATIENT
  Age: 22 Year
  Sex: Female

DRUGS (1)
  1. COPAXONE [Suspect]
     Indication: MULTIPLE SCLEROSIS
     Dosage: QD
     Route: 058
     Dates: start: 20090226

REACTIONS (1)
  - DYSGEUSIA [None]
